FAERS Safety Report 21955756 (Version 4)
Quarter: 2024Q3

REPORT INFORMATION
  Report Type: Spontaneous
  Country: BR (occurrence: BR)
  Receive Date: 20230206
  Receipt Date: 20240909
  Transmission Date: 20241016
  Serious: Yes (Disabling, Other)
  Sender: CELLTRION
  Company Number: BR-CELLTRION INC.-2023BR002721

PATIENT

DRUGS (1)
  1. INFLIXIMAB [Suspect]
     Active Substance: INFLIXIMAB
     Indication: Colitis ulcerative
     Dosage: 3 AMPOULES OF 100 MG EACH (300 MG TOTAL) EVERY 2 MONTHS
     Route: 042
     Dates: start: 20221122

REACTIONS (4)
  - Immunodeficiency [Unknown]
  - Pain [Unknown]
  - Malaise [Recovered/Resolved]
  - Intentional dose omission [Unknown]
